FAERS Safety Report 19286313 (Version 5)
Quarter: 2021Q4

REPORT INFORMATION
  Report Type: Spontaneous
  Country: US (occurrence: US)
  Receive Date: 20210521
  Receipt Date: 20211012
  Transmission Date: 20220304
  Serious: Yes (Other)
  Sender: FDA-Public Use
  Company Number: US-AMGEN-USASP2021075312

PATIENT
  Age: 86 Year
  Sex: Male

DRUGS (7)
  1. XGEVA [Suspect]
     Active Substance: DENOSUMAB
     Indication: Product used for unknown indication
     Dosage: 120 MILLIGRAM
     Route: 065
     Dates: start: 20210219
  2. XTANDI [Suspect]
     Active Substance: ENZALUTAMIDE
     Indication: Prostate cancer
     Dosage: 160 MILLIGRAM, QD, (CAPSULE FORMULATION)
     Route: 048
     Dates: start: 20210118
  3. XTANDI [Suspect]
     Active Substance: ENZALUTAMIDE
     Dosage: UNK, (CAPSULE FORMULATION)
     Route: 048
  4. XTANDI [Suspect]
     Active Substance: ENZALUTAMIDE
     Dosage: 160 MILLIGRAM, QD (TABLET FORMULATION)
     Route: 048
  5. COVID-19 VACCINE [Concomitant]
     Indication: Product used for unknown indication
     Dosage: UNK
     Route: 065
     Dates: start: 20210219
  6. MIRALAX [Concomitant]
     Active Substance: POLYETHYLENE GLYCOL 3350
  7. LUPRON [Concomitant]
     Active Substance: LEUPROLIDE ACETATE

REACTIONS (28)
  - Lower respiratory tract infection [Unknown]
  - Chest pain [Unknown]
  - Renal pain [Unknown]
  - Contusion [Unknown]
  - Somnolence [Unknown]
  - Blood pressure increased [Unknown]
  - Hot flush [Unknown]
  - Muscular weakness [Unknown]
  - Eye irritation [Unknown]
  - Muscle tightness [Unknown]
  - Chills [Unknown]
  - Abdominal distension [Unknown]
  - Blood pressure fluctuation [Unknown]
  - Echocardiogram abnormal [Unknown]
  - Weight increased [Unknown]
  - Eating disorder [Unknown]
  - Joint swelling [Unknown]
  - Eye pruritus [Unknown]
  - Fluid retention [Unknown]
  - Temperature intolerance [Unknown]
  - Decreased appetite [Unknown]
  - Pain in jaw [Unknown]
  - Rash [Unknown]
  - Back pain [Unknown]
  - Pain in extremity [Recovering/Resolving]
  - Asthenia [Unknown]
  - Arthralgia [Unknown]
  - Dyspnoea [Unknown]

NARRATIVE: CASE EVENT DATE: 20210101
